FAERS Safety Report 7520121-4 (Version None)
Quarter: 2011Q2

REPORT INFORMATION
  Report Type: 
  Country: None (occurrence: None)
  Receive Date: 20110602
  Receipt Date: 20110523
  Transmission Date: 20111010
  Serious: Yes (Death)
  Sender: FDA-Public Use
  Company Number: US-CELGENEUS-163-21880-11053026

PATIENT
  Sex: Male

DRUGS (5)
  1. OXYCODONE HCL [Concomitant]
     Route: 065
  2. COUMADIN [Concomitant]
     Route: 065
  3. TERAZOSIN HCL [Concomitant]
     Route: 065
  4. REVLIMID [Suspect]
     Dosage: 25 MILLIGRAM
     Route: 048
     Dates: start: 20110506, end: 20110501
  5. NUCYNTA [Concomitant]
     Route: 065

REACTIONS (1)
  - DEATH [None]
